FAERS Safety Report 5374374-1 (Version None)
Quarter: 2007Q2

REPORT INFORMATION
  Report Type: 
  Country: None (occurrence: None)
  Receive Date: 20070628
  Receipt Date: 20070628
  Transmission Date: 20071010
  Serious: Yes (Other)
  Sender: FDA-Public Use
  Company Number: None

PATIENT
  Age: 69 Year
  Sex: Female
  Weight: 117.9352 kg

DRUGS (1)
  1. FLEBOGAMMA [Suspect]
     Indication: IMMUNODEFICIENCY COMMON VARIABLE
     Dosage: 42 GRAMS MONTHLY IV DRIP
     Route: 041
     Dates: start: 20051201, end: 20070625

REACTIONS (4)
  - BLISTER [None]
  - BURNING SENSATION [None]
  - INFUSION SITE SWELLING [None]
  - INJECTION SITE REACTION [None]
